FAERS Safety Report 8902638 (Version 5)
Quarter: 2013Q2

REPORT INFORMATION
  Report Type: Report from Study
  Country: JP (occurrence: JP)
  Receive Date: 20121112
  Receipt Date: 20130531
  Transmission Date: 20140414
  Serious: No
  Sender: FDA-Public Use
  Company Number: JP-JNJFOC-20121101248

PATIENT
  Age: 83 Year
  Sex: Female
  Weight: 32 kg

DRUGS (41)
  1. DUROTEP MT [Suspect]
     Indication: PAIN
     Route: 062
     Dates: start: 20101108, end: 20101205
  2. DUROTEP MT [Suspect]
     Indication: PAIN
     Route: 062
     Dates: start: 20101203, end: 20110210
  3. DUROTEP MT [Suspect]
     Indication: PAIN
     Route: 062
     Dates: start: 20110210, end: 20110927
  4. DUROTEP MT [Suspect]
     Indication: PAIN
     Route: 062
     Dates: start: 20110927, end: 20111108
  5. MORPHINE HYDROCHLORIDE [Suspect]
     Indication: PAIN
     Route: 048
     Dates: start: 20101206
  6. MORPHINE HYDROCHLORIDE [Suspect]
     Indication: PAIN
     Route: 048
     Dates: start: 20101227, end: 20110110
  7. MORPHINE HYDROCHLORIDE [Suspect]
     Indication: PAIN
     Route: 048
     Dates: start: 20110426
  8. MORPHINE HYDROCHLORIDE [Suspect]
     Indication: PAIN
     Route: 048
     Dates: start: 20111101, end: 20111107
  9. MORPHINE HYDROCHLORIDE [Suspect]
     Indication: PAIN
     Route: 048
     Dates: start: 20110111, end: 20110425
  10. CODEINE PHOSPHATE [Suspect]
     Indication: PAIN
     Route: 048
     Dates: start: 20101108
  11. CODEINE PHOSPHATE [Suspect]
     Indication: PAIN
     Route: 048
     Dates: start: 20101115
  12. CODEINE PHOSPHATE [Suspect]
     Indication: PAIN
     Route: 048
     Dates: start: 20101129
  13. CODEINE PHOSPHATE [Suspect]
     Indication: PAIN
     Route: 048
     Dates: start: 20101122
  14. CODEINE PHOSPHATE [Suspect]
     Indication: PAIN
     Route: 048
     Dates: start: 20101119, end: 20101203
  15. CODEINE PHOSPHATE [Suspect]
     Indication: PAIN
     Route: 048
     Dates: start: 20101220, end: 20101227
  16. VOLTAREN [Concomitant]
     Indication: PAIN
     Route: 048
     Dates: start: 20101203, end: 20101214
  17. UNKNOWN MEDICATION [Concomitant]
     Indication: PAIN
     Route: 048
     Dates: start: 20101210
  18. UNKNOWN MEDICATION [Concomitant]
     Indication: PAIN
     Route: 048
     Dates: start: 20110207, end: 20110221
  19. NOVAMIN [Concomitant]
     Indication: PROPHYLAXIS
     Route: 048
     Dates: start: 20110207, end: 20110214
  20. NOVAMIN [Concomitant]
     Indication: PROPHYLAXIS
     Route: 048
     Dates: start: 20101210
  21. WARFARIN [Concomitant]
     Route: 048
  22. LASIX [Concomitant]
     Route: 048
  23. LUPRAC [Concomitant]
     Route: 048
  24. MIYA BM [Concomitant]
     Route: 048
  25. COLONEL [Concomitant]
     Route: 048
  26. DEPAS [Concomitant]
     Route: 048
  27. SIMVASTATIN [Concomitant]
     Route: 048
  28. BASEN [Concomitant]
     Route: 048
  29. ZONISAMIDE [Concomitant]
     Route: 048
  30. ARICEPT [Concomitant]
     Route: 048
  31. ADALAT [Concomitant]
     Route: 048
  32. PRAMIPEXOLE HYDROCHLORIDE HYDRATE [Concomitant]
     Route: 048
  33. ALMARL [Concomitant]
     Route: 048
  34. OMEPRAZON [Concomitant]
     Route: 048
  35. LENDORMIN [Concomitant]
     Route: 048
  36. PREDNISOLONE [Concomitant]
     Route: 048
  37. PREDONINE [Concomitant]
     Route: 048
  38. FELBINAC [Concomitant]
     Indication: PAIN
     Route: 062
     Dates: start: 20110222, end: 20110327
  39. MOHRUS TAPE L [Concomitant]
     Indication: PAIN
     Route: 062
     Dates: start: 20110328, end: 20110830
  40. SUMILU [Concomitant]
     Indication: PAIN
     Route: 062
     Dates: start: 20110415, end: 20110628
  41. CALONAL [Concomitant]
     Indication: PAIN
     Route: 048
     Dates: start: 20110915

REACTIONS (5)
  - Depressed mood [Recovering/Resolving]
  - Incorrect drug administration duration [Unknown]
  - Nausea [Recovered/Resolved]
  - Eczema [Recovered/Resolved]
  - Depression [Recovering/Resolving]
